FAERS Safety Report 7647023-7 (Version None)
Quarter: 2011Q3

REPORT INFORMATION
  Report Type: 
  Country: None (occurrence: None)
  Receive Date: 20110801
  Receipt Date: 20110720
  Transmission Date: 20111222
  Serious: Yes (Life-Threatening, Other)
  Sender: FDA-Public Use
  Company Number: US-JNJFOC-20110412361

PATIENT
  Sex: Female
  Weight: 87.54 kg

DRUGS (9)
  1. SYNTHROID [Concomitant]
  2. REMICADE [Suspect]
     Route: 042
     Dates: start: 20100601
  3. REMICADE [Suspect]
     Indication: PSORIASIS
     Route: 042
     Dates: start: 20110426, end: 20110426
  4. REMICADE [Suspect]
     Route: 042
     Dates: start: 20100601
  5. CLARITIN [Concomitant]
  6. REMICADE [Suspect]
     Indication: PSORIATIC ARTHROPATHY
     Route: 042
     Dates: start: 20110426, end: 20110426
  7. ESTRACE [Concomitant]
  8. VITAMIN D [Concomitant]
  9. PRILOSEC [Concomitant]

REACTIONS (7)
  - OXYGEN SATURATION DECREASED [None]
  - CHEST DISCOMFORT [None]
  - BLOOD PRESSURE INCREASED [None]
  - RASH [None]
  - DYSPNOEA [None]
  - INFUSION RELATED REACTION [None]
  - FLUSHING [None]
